FAERS Safety Report 7004712-5 (Version None)
Quarter: 2010Q3

REPORT INFORMATION
  Report Type: 
  Country: None (occurrence: None)
  Receive Date: 20100917
  Receipt Date: 20100901
  Transmission Date: 20110219
  Serious: Yes (Hospitalization)
  Sender: FDA-Public Use
  Company Number: 7016355

PATIENT
  Age: 18 Year
  Sex: Female

DRUGS (1)
  1. LEVOTHYROXINE SODIUM [Suspect]
     Indication: CONGENITAL HYPOTHYROIDISM

REACTIONS (3)
  - BLOOD THYROID STIMULATING HORMONE INCREASED [None]
  - THYROXINE DECREASED [None]
  - VOMITING [None]
